FAERS Safety Report 6496759-2 (Version None)
Quarter: 2009Q4

REPORT INFORMATION
  Report Type: 
  Country: None (occurrence: None)
  Receive Date: 20091211
  Receipt Date: 20091201
  Transmission Date: 20100525
  Serious: Yes (Death)
  Sender: FDA-Public Use
  Company Number: 171

PATIENT
  Age: 60 Year
  Sex: Male
  Weight: 51.7101 kg

DRUGS (6)
  1. FAZACLO ODT [Suspect]
     Indication: SCHIZOAFFECTIVE DISORDER
     Dosage: 550 MG PO DAILY
     Route: 048
     Dates: start: 20051219, end: 20071215
  2. ACTIVAN PRN [Concomitant]
  3. CLONAZEPAM [Concomitant]
  4. TRILAFON [Concomitant]
  5. LAMICTAL [Concomitant]
  6. ALBUTEROL SULATE [Concomitant]

REACTIONS (4)
  - GASTRIC DISORDER [None]
  - PNEUMONIA [None]
  - RESPIRATORY DISTRESS [None]
  - TREATMENT NONCOMPLIANCE [None]
